FAERS Safety Report 8310544-8 (Version None)
Quarter: 2012Q2

REPORT INFORMATION
  Report Type: 
  Country: None (occurrence: None)
  Receive Date: 20120425
  Receipt Date: 20120410
  Transmission Date: 20120825
  Serious: Yes (Other)
  Sender: FDA-Public Use
  Company Number: DE-ROCHE-1056510

PATIENT
  Age: 70 Year
  Sex: Female

DRUGS (6)
  1. LOSARTAN POTASSIUM [Concomitant]
     Indication: AORTIC VALVE REPLACEMENT
  2. ACETYLSALICYLIC ACID SRT [Concomitant]
  3. AMIODARONE HCL [Concomitant]
     Indication: AORTIC VALVE REPLACEMENT
  4. BISOPROLOL FUMARATE [Concomitant]
  5. PHENPROCOUMON [Suspect]
     Indication: AORTIC VALVE REPLACEMENT
  6. TORSEMIDE [Suspect]
     Indication: AORTIC VALVE REPLACEMENT

REACTIONS (1)
  - CUTANEOUS LUPUS ERYTHEMATOSUS [None]
